FAERS Safety Report 5905957-5 (Version None)
Quarter: 2008Q4

REPORT INFORMATION
  Report Type: 
  Country: None (occurrence: None)
  Receive Date: 20081002
  Receipt Date: 20080925
  Transmission Date: 20090506
  Serious: No
  Sender: FDA-Public Use
  Company Number: US-AVENTIS-200816404US

PATIENT
  Sex: Female

DRUGS (2)
  1. ARAVA [Suspect]
     Dates: end: 20080701
  2. DEPO-PROVERA [Concomitant]
     Dosage: DOSE: UNK
     Dates: end: 20080701

REACTIONS (1)
  - DRUG EXPOSURE DURING PREGNANCY [None]
